FAERS Safety Report 15869429 (Version 6)
Quarter: 2019Q2

REPORT INFORMATION
  Report Type: Spontaneous
  Country: US (occurrence: US)
  Receive Date: 20190125
  Receipt Date: 20190614
  Transmission Date: 20190711
  Serious: Yes (Hospitalization, Disabling, Other)
  Sender: FDA-Public Use
  Company Number: US-PURDUE-USA-2019-0145758

PATIENT
  Age: 64 Year
  Sex: Female
  Weight: 72.56 kg

DRUGS (5)
  1. OXYCODONE/ ACETAMINOPHEN TABLETS [Suspect]
     Active Substance: ACETAMINOPHEN\OXYCODONE HYDROCHLORIDE
     Dosage: 2 X 10/325 MG TABLET, DAILY
     Route: 048
     Dates: start: 2009
  2. OXYCODONE/ ACETAMINOPHEN TABLETS [Suspect]
     Active Substance: ACETAMINOPHEN\OXYCODONE HYDROCHLORIDE
     Dosage: 4 X 10/325 MG TABLET, DAILY
     Route: 048
     Dates: start: 2009
  3. OXYCODONE/ ACETAMINOPHEN TABLETS [Suspect]
     Active Substance: ACETAMINOPHEN\OXYCODONE HYDROCHLORIDE
     Indication: PAIN
     Dosage: 1 X 10/325 MG TABLET, TID
     Route: 048
     Dates: start: 2009
  4. DEPAKOTE [Concomitant]
     Active Substance: DIVALPROEX SODIUM
     Indication: PRODUCT USED FOR UNKNOWN INDICATION
     Dosage: UNK
     Route: 065
  5. TYLENOL [Concomitant]
     Active Substance: ACETAMINOPHEN
     Indication: PAIN
     Dosage: UNK
     Route: 065

REACTIONS (28)
  - Mood swings [Unknown]
  - Judgement impaired [Unknown]
  - Suicidal ideation [Unknown]
  - Suicide attempt [Unknown]
  - Disability [Unknown]
  - Drug titration error [Unknown]
  - Mania [Unknown]
  - Abnormal behaviour [Unknown]
  - Confusional state [Unknown]
  - Unevaluable event [Unknown]
  - Bipolar disorder [Unknown]
  - Impaired work ability [Not Recovered/Not Resolved]
  - Stress [Not Recovered/Not Resolved]
  - Drug dependence [Not Recovered/Not Resolved]
  - Limb operation [Unknown]
  - Scar [Not Recovered/Not Resolved]
  - Furuncle [Not Recovered/Not Resolved]
  - Euphoric mood [Unknown]
  - Incorrect dose administered [Unknown]
  - Depression suicidal [Unknown]
  - Seizure [Unknown]
  - Palpitations [Unknown]
  - Skin haemorrhage [Not Recovered/Not Resolved]
  - Extrasystoles [Not Recovered/Not Resolved]
  - Blister [Not Recovered/Not Resolved]
  - Psychomotor hyperactivity [Unknown]
  - Chronic obstructive pulmonary disease [Unknown]
  - Urticaria [Unknown]

NARRATIVE: CASE EVENT DATE: 2010
